FAERS Safety Report 17483255 (Version 1)
Quarter: 2020Q1

REPORT INFORMATION
  Report Type: Spontaneous
  Country: US (occurrence: US)
  Receive Date: 20200218
  Receipt Date: 20200218
  Transmission Date: 20200409
  Serious: Yes (Other)
  Sender: FDA-Public Use
  Company Number: None

PATIENT
  Age: 63 Year
  Sex: Female
  Weight: 82.1 kg

DRUGS (18)
  1. SIMVASTATIN. [Concomitant]
     Active Substance: SIMVASTATIN
  2. LAMOTRIGINE. [Concomitant]
     Active Substance: LAMOTRIGINE
  3. NORVASC [Concomitant]
     Active Substance: AMLODIPINE BESYLATE
  4. TOUJEO [Concomitant]
     Active Substance: INSULIN GLARGINE
  5. LYRICA [Concomitant]
     Active Substance: PREGABALIN
  6. NICOCARDIA [Concomitant]
  7. IMODIUM [Concomitant]
     Active Substance: LOPERAMIDE HYDROCHLORIDE
  8. METFORMIN [Concomitant]
     Active Substance: METFORMIN HYDROCHLORIDE
  9. INDERAL [Concomitant]
     Active Substance: PROPRANOLOL HYDROCHLORIDE
  10. ASA [Concomitant]
     Active Substance: ASPIRIN
  11. NEOMYCIN AND POLYMYXIN B SULFATES AND HYDROCORTISONE [Suspect]
     Active Substance: HYDROCORTISONE\NEOMYCIN SULFATE\POLYMYXIN B SULFATE
     Indication: EAR INFECTION
     Dosage: ?          OTHER ROUTE:TO EAR?
  12. TYLENOL [Concomitant]
     Active Substance: ACETAMINOPHEN
  13. ARICEPT [Concomitant]
     Active Substance: DONEPEZIL HYDROCHLORIDE
  14. SEROQUEL [Concomitant]
     Active Substance: QUETIAPINE FUMARATE
  15. ACTOS [Concomitant]
     Active Substance: PIOGLITAZONE HYDROCHLORIDE
  16. CYMBALTA [Concomitant]
     Active Substance: DULOXETINE HYDROCHLORIDE
  17. REGULAR INSULIN [Concomitant]
     Active Substance: INSULIN NOS
  18. ADVIL [Concomitant]
     Active Substance: IBUPROFEN

REACTIONS (7)
  - Nausea [None]
  - Confusional state [None]
  - Vomiting [None]
  - Balance disorder [None]
  - Ear pain [None]
  - Dizziness [None]
  - Hypoacusis [None]

NARRATIVE: CASE EVENT DATE: 20200203
